FAERS Safety Report 24324311 (Version 1)
Quarter: 2024Q3

REPORT INFORMATION
  Report Type: Spontaneous
  Country: RU (occurrence: RU)
  Receive Date: 20240916
  Receipt Date: 20240916
  Transmission Date: 20241017
  Serious: Yes (Hospitalization)
  Sender: NOVARTIS
  Company Number: None

PATIENT
  Age: 32 Year
  Sex: Male

DRUGS (2)
  1. TRILEPTAL [Suspect]
     Active Substance: OXCARBAZEPINE
     Indication: Suicide attempt
     Dosage: UNK (20 TABLETS)
     Route: 048
     Dates: start: 20240902, end: 20240902
  2. VALPROIC ACID [Concomitant]
     Active Substance: VALPROIC ACID
     Indication: Suicide attempt
     Dosage: UNK (10 TABLETS)
     Route: 048
     Dates: start: 20240902, end: 20240902

REACTIONS (2)
  - Stupor [Recovering/Resolving]
  - Off label use [Unknown]

NARRATIVE: CASE EVENT DATE: 20240902
